FAERS Safety Report 7208561-4 (Version None)
Quarter: 2011Q1

REPORT INFORMATION
  Report Type: 
  Country: None (occurrence: None)
  Receive Date: 20110104
  Receipt Date: 20101223
  Transmission Date: 20110831
  Serious: Yes (Other)
  Sender: FDA-Public Use
  Company Number: US-JNJFOC-20100800716

PATIENT
  Sex: Female

DRUGS (2)
  1. PHENERGAN W/ DEXTROMETHORPHAN [Suspect]
     Indication: PRODUCT USED FOR UNKNOWN INDICATION
     Route: 065
  2. LEVAQUIN [Suspect]
     Indication: BRONCHITIS
     Route: 048

REACTIONS (11)
  - MUSCLE ATROPHY [None]
  - NAUSEA [None]
  - PAIN IN EXTREMITY [None]
  - DECREASED APPETITE [None]
  - ROTATOR CUFF SYNDROME [None]
  - TREMOR [None]
  - TENDON RUPTURE [None]
  - BURSITIS [None]
  - DIARRHOEA [None]
  - MALAISE [None]
  - MYALGIA [None]
